FAERS Safety Report 8308728-8 (Version None)
Quarter: 2012Q1

REPORT INFORMATION
  Report Type: 
  Country: None (occurrence: None)
  Receive Date: 20120327
  Receipt Date: 20110321
  Transmission Date: 20120608
  Serious: Yes (Death)
  Sender: FDA-Public Use
  Company Number: PHHY2011US12842

PATIENT
  Age: 70 Year
  Sex: Male
  Weight: 93 kg

DRUGS (10)
  1. CITALOPRAM HYDROBROMIDE [Concomitant]
  2. NEXAVAR [Concomitant]
  3. GLEEVEC [Suspect]
     Dosage: 400 MG, BID, ORAL
     Route: 048
     Dates: end: 20101101
  4. VESICARE [Concomitant]
  5. PANTOPRAZOLE [Concomitant]
  6. SIMVASTATIN [Concomitant]
  7. SUTENT [Concomitant]
  8. SPIRIVA [Concomitant]
  9. TRAZODONE HCL [Concomitant]
  10. LASIX [Concomitant]

REACTIONS (2)
  - GASTROINTESTINAL STROMAL TUMOUR [None]
  - NEOPLASM MALIGNANT [None]
